FAERS Safety Report 11802771 (Version 1)
Quarter: 2015Q4

REPORT INFORMATION
  Report Type: Spontaneous
  Country: US (occurrence: US)
  Receive Date: 20151204
  Receipt Date: 20151204
  Transmission Date: 20160305
  Serious: Yes (Hospitalization)
  Sender: FDA-Public Use
  Company Number: US-BEH-2014047091

PATIENT
  Sex: Female
  Weight: 58 kg

DRUGS (13)
  1. SODIUM CHLORIDE. [Concomitant]
     Active Substance: SODIUM CHLORIDE
  2. BERINERT [Suspect]
     Active Substance: HUMAN C1-ESTERASE INHIBITOR
     Indication: COMPLEMENT FACTOR ABNORMAL
     Route: 042
  3. ONE-A-DAY MULTIVITAMIN [Concomitant]
  4. PROMETHAZINE [Concomitant]
     Active Substance: PROMETHAZINE\PROMETHAZINE HYDROCHLORIDE
  5. NORMAL SALINE [Concomitant]
     Active Substance: SODIUM CHLORIDE
  6. CINRYZE [Concomitant]
     Active Substance: HUMAN C1-ESTERASE INHIBITOR
     Indication: PROPHYLAXIS
  7. HEPARIN [Concomitant]
     Active Substance: HEPARIN SODIUM
  8. EPIPEN [Concomitant]
     Active Substance: EPINEPHRINE
  9. LMX [Concomitant]
     Active Substance: LIDOCAINE
  10. IBUPROFEN. [Concomitant]
     Active Substance: IBUPROFEN
  11. ACETAMINOPHEN CODEINE [Concomitant]
     Active Substance: ACETAMINOPHEN\CODEINE PHOSPHATE
  12. BERINERT [Suspect]
     Active Substance: HUMAN C1-ESTERASE INHIBITOR
     Indication: HEREDITARY ANGIOEDEMA
     Route: 042
  13. DIPHENHYDRAMINE. [Concomitant]
     Active Substance: DIPHENHYDRAMINE

REACTIONS (4)
  - Hereditary angioedema [Unknown]
  - Therapeutic response decreased [Unknown]
  - Laryngeal disorder [Unknown]
  - Exposure during pregnancy [Unknown]
